FAERS Safety Report 26057035 (Version 1)
Quarter: 2025Q4

REPORT INFORMATION
  Report Type: Spontaneous
  Country: US (occurrence: US)
  Receive Date: 20251118
  Receipt Date: 20251118
  Transmission Date: 20260117
  Serious: No
  Sender: RANBAXY
  Company Number: US-SUN PHARMACEUTICAL INDUSTRIES LTD-2025R1-526739

PATIENT
  Age: 47 Year
  Sex: Female

DRUGS (1)
  1. LEQSELVI [Suspect]
     Active Substance: DEURUXOLITINIB PHOSPHATE
     Indication: Alopecia totalis
     Dosage: UNK
     Route: 065

REACTIONS (3)
  - Arthralgia [Unknown]
  - Joint swelling [Unknown]
  - Gait disturbance [Unknown]
